FAERS Safety Report 19317646 (Version 2)
Quarter: 2021Q3

REPORT INFORMATION
  Report Type: Report from Study
  Country: None (occurrence: US)
  Receive Date: 20210528
  Receipt Date: 20210809
  Transmission Date: 20211014
  Serious: Yes (Hospitalization)
  Sender: FDA-Public Use
  Company Number: US-ABBVIE-21K-163-3883391-00

PATIENT
  Sex: Female

DRUGS (2)
  1. RINVOQ [Suspect]
     Active Substance: UPADACITINIB
     Route: 048
  2. RINVOQ [Suspect]
     Active Substance: UPADACITINIB
     Indication: RHEUMATOID ARTHRITIS
     Route: 048

REACTIONS (15)
  - Back injury [Unknown]
  - Respiratory disorder [Unknown]
  - Rheumatoid arthritis [Unknown]
  - Fall [Unknown]
  - Head injury [Unknown]
  - Insomnia [Unknown]
  - Asthenia [Unknown]
  - Lumbar vertebral fracture [Unknown]
  - Limb injury [Unknown]
  - Muscle atrophy [Unknown]
  - Weight increased [Unknown]
  - Constipation [Unknown]
  - Pain [Unknown]
  - Bowel movement irregularity [Unknown]
  - Swelling [Unknown]
